FAERS Safety Report 7241875-0 (Version None)
Quarter: 2011Q1

REPORT INFORMATION
  Report Type: 
  Country: None (occurrence: None)
  Receive Date: 20110124
  Receipt Date: 20110113
  Transmission Date: 20110831
  Serious: Yes (Hospitalization)
  Sender: FDA-Public Use
  Company Number: JP-BRISTOL-MYERS SQUIBB COMPANY-15503683

PATIENT
  Age: 21 Year
  Sex: Male

DRUGS (3)
  1. ARIPIPRAZOLE [Suspect]
     Indication: SCHIZOPHRENIA
     Route: 030
     Dates: start: 20110113, end: 20110113
  2. PLACEBO [Suspect]
     Indication: SCHIZOPHRENIA
     Route: 030
  3. ABILIFY [Suspect]
     Indication: SCHIZOPHRENIA
     Dosage: AT EVENING
     Route: 048
     Dates: start: 20101215, end: 20110112

REACTIONS (1)
  - SCHIZOPHRENIA [None]
